FAERS Safety Report 11702444 (Version 2)
Quarter: 2017Q1

REPORT INFORMATION
  Report Type: Spontaneous
  Country: US (occurrence: US)
  Receive Date: 20151105
  Receipt Date: 20170322
  Transmission Date: 20170428
  Serious: Yes (Hospitalization, Other)
  Sender: FDA-Public Use
  Company Number: US-BRISTOL-MYERS SQUIBB COMPANY-BMS-2015-073908

PATIENT
  Age: 23 Year
  Sex: Female

DRUGS (2)
  1. ENOXAPARIN [Suspect]
     Active Substance: ENOXAPARIN
     Indication: VENOUS THROMBOSIS
     Dosage: UNK
     Route: 030
  2. WARFARIN SODIUM. [Suspect]
     Active Substance: WARFARIN SODIUM
     Indication: VENOUS THROMBOSIS
     Route: 048

REACTIONS (5)
  - Transfusion [Unknown]
  - Epidural blood patch [Unknown]
  - Subdural haematoma [Recovering/Resolving]
  - International normalised ratio increased [Unknown]
  - Intracranial hypotension [Unknown]
